FAERS Safety Report 9476159 (Version 1)
Quarter: 2013Q3

REPORT INFORMATION
  Report Type: Spontaneous
  Country: US (occurrence: None)
  Receive Date: 20130823
  Receipt Date: 20130823
  Transmission Date: 20140515
  Serious: Yes (Hospitalization)
  Sender: FDA-Public Use
  Company Number: None

PATIENT
  Age: 83 Year
  Sex: Male
  Weight: 71.5 kg

DRUGS (3)
  1. IBUPROFEN [Suspect]
     Indication: PAIN
     Dosage: 400 MG TID PO
     Route: 048
     Dates: start: 20121221, end: 20130801
  2. IBUPROFEN [Suspect]
     Indication: INFLAMMATION
     Dosage: 400 MG TID PO
     Route: 048
     Dates: start: 20121221, end: 20130801
  3. ASPIRIN [Suspect]
     Indication: CEREBROVASCULAR ACCIDENT PROPHYLAXIS
     Dosage: 81 MG EVERY DAY PO
     Route: 048
     Dates: start: 20120529

REACTIONS (2)
  - Anaemia [None]
  - Gastric haemorrhage [None]
